FAERS Safety Report 9335865 (Version 1)
Quarter: 2013Q2

REPORT INFORMATION
  Report Type: Spontaneous
  Country: US (occurrence: US)
  Receive Date: 20130606
  Receipt Date: 20130606
  Transmission Date: 20140414
  Serious: No
  Sender: FDA-Public Use
  Company Number: US-AMGEN-USASP2013022579

PATIENT
  Age: 75 Year
  Sex: Female

DRUGS (7)
  1. PROLIA [Suspect]
     Indication: OSTEOPOROSIS POSTMENOPAUSAL
     Dosage: UNK UNK, Q6MO
  2. DILANTIN                           /00017401/ [Concomitant]
  3. THYROID THERAPY [Concomitant]
  4. VITAMINS /90003601/ [Concomitant]
  5. CALCIUM [Concomitant]
  6. VITAMIN D                          /00107901/ [Concomitant]
  7. ASPIRIN [Concomitant]

REACTIONS (5)
  - Asthenopia [Unknown]
  - Hyperaesthesia [Recovered/Resolved]
  - Pain of skin [Recovered/Resolved]
  - Eye pain [Unknown]
  - Eye disorder [Not Recovered/Not Resolved]
